FAERS Safety Report 14236289 (Version 2)
Quarter: 2020Q2

REPORT INFORMATION
  Report Type: Spontaneous
  Country: US (occurrence: US)
  Receive Date: 20171129
  Receipt Date: 20200429
  Transmission Date: 20200713
  Serious: Yes (Other)
  Sender: FDA-Public Use
  Company Number: US-BRISTOL-MYERS SQUIBB COMPANY-BMS-2017-106626

PATIENT
  Sex: Female
  Weight: 63.5 kg

DRUGS (3)
  1. DOFETILIDE. [Concomitant]
     Active Substance: DOFETILIDE
     Indication: HEART RATE IRREGULAR
     Dosage: 125 ?G, QD
     Route: 065
  2. ELIQUIS [Suspect]
     Active Substance: APIXABAN
     Indication: HEART RATE IRREGULAR
     Dosage: 5 MG, BID
     Route: 065
  3. SIMVASTATIN. [Concomitant]
     Active Substance: SIMVASTATIN
     Indication: BLOOD CHOLESTEROL
     Dosage: 5 MG, BID
     Route: 065

REACTIONS (2)
  - Intentional product use issue [Unknown]
  - Heart rate irregular [Unknown]
